FAERS Safety Report 4305684-4 (Version None)
Quarter: 2004Q1

REPORT INFORMATION
  Report Type: 
  Country: None (occurrence: None)
  Receive Date: 20040225
  Receipt Date: 20040212
  Transmission Date: 20041129
  Serious: Yes (Life-Threatening, Hospitalization)
  Sender: FDA-Public Use
  Company Number: US-JNJFOC-20040200243

PATIENT
  Age: 42 Year
  Sex: Male
  Weight: 79.3795 kg

DRUGS (3)
  1. INFLIXIMAB (INFLIXIMAB, RECOMBINANT) LYOPHILIZED POWDER [Suspect]
     Indication: CROHN'S DISEASE
     Dosage: 5 MG/KG, INTRAVENOUS
     Route: 042
     Dates: start: 20030424
  2. MESALAMINE ( ) MESALAZINE [Concomitant]
  3. PREDNISONE [Concomitant]

REACTIONS (12)
  - ASTHENIA [None]
  - BLOOD CULTURE POSITIVE [None]
  - CATHETER RELATED COMPLICATION [None]
  - CONFUSIONAL STATE [None]
  - DEEP VEIN THROMBOSIS [None]
  - DIZZINESS [None]
  - LETHARGY [None]
  - LIVER FUNCTION TEST ABNORMAL [None]
  - PNEUMONIA LEGIONELLA [None]
  - RESPIRATORY FAILURE [None]
  - STAPHYLOCOCCAL INFECTION [None]
  - URINARY TRACT DISORDER [None]
